FAERS Safety Report 5102559-8 (Version None)
Quarter: 2006Q3

REPORT INFORMATION
  Report Type: 
  Country: None (occurrence: None)
  Receive Date: 20060912
  Receipt Date: 20060901
  Transmission Date: 20061208
  Serious: Yes (Hospitalization)
  Sender: FDA-Public Use
  Company Number: DE-GLAXOSMITHKLINE-B0383758B

PATIENT
  Age: 72 Year
  Sex: Male
  Weight: 86 kg

DRUGS (2)
  1. DUTASTERIDE [Suspect]
     Indication: NEOPLASM PROPHYLAXIS
     Route: 048
     Dates: start: 20041123
  2. HUMALOG [Concomitant]

REACTIONS (1)
  - CORONARY ARTERY DISEASE [None]
